FAERS Safety Report 7127964-X (Version None)
Quarter: 2010Q4

REPORT INFORMATION
  Report Type: 
  Country: None (occurrence: None)
  Receive Date: 20101130
  Receipt Date: 20101119
  Transmission Date: 20110411
  Serious: Yes (Hospitalization)
  Sender: FDA-Public Use
  Company Number: AT-JNJFOC-20101107042

PATIENT
  Age: 64 Year
  Sex: Female

DRUGS (18)
  1. REMICADE [Suspect]
     Indication: RHEUMATOID ARTHRITIS
     Route: 042
  2. REMICADE [Suspect]
     Route: 042
  3. REMICADE [Suspect]
     Route: 042
  4. REMICADE [Suspect]
     Route: 042
  5. LEVOTHYROXINE SODIUM [Concomitant]
     Indication: GOITRE
  6. PANTOPRAZOLE [Concomitant]
     Indication: REFLUX OESOPHAGITIS
  7. PANTOPRAZOLE [Concomitant]
  8. BISOPROLOL [Concomitant]
     Indication: HYPERTENSION
  9. CALCIUM [Concomitant]
     Indication: OSTEOPOROSIS PROPHYLAXIS
  10. VITAMIN D [Concomitant]
     Indication: OSTEOPOROSIS PROPHYLAXIS
  11. FOLIC ACID [Concomitant]
     Indication: PROPHYLAXIS
  12. METHOTREXATE [Concomitant]
     Indication: POLYARTHRITIS
  13. PREDNISOLONE [Concomitant]
     Indication: POLYARTHRITIS
  14. PREDNISOLONE [Concomitant]
  15. PREDNISOLONE [Concomitant]
  16. PREDNISOLONE [Concomitant]
  17. PREDNISOLONE [Concomitant]
  18. TRAMADOL HYDROCHLORIDE [Concomitant]
     Indication: ARTHRALGIA

REACTIONS (1)
  - SALIVARY GLAND ADENOMA [None]
